FAERS Safety Report 5565161-X (Version None)
Quarter: 2007Q4

REPORT INFORMATION
  Report Type: 
  Country: None (occurrence: None)
  Receive Date: 20071213
  Receipt Date: 20071206
  Transmission Date: 20080405
  Serious: Yes (Other)
  Sender: FDA-Public Use
  Company Number: CHPA2007US13356

PATIENT
  Age: 36 Year
  Sex: Male

DRUGS (1)
  1. BUCKLEY'S CHEST CONGESTION(GUAIFENESIN) LIQUID [Suspect]
     Dosage: 2 TSP, ONCE/SINGLE, ORAL
     Route: 048
     Dates: start: 20071206, end: 20071206

REACTIONS (3)
  - FEELING ABNORMAL [None]
  - PARAESTHESIA ORAL [None]
  - SWOLLEN TONGUE [None]
